FAERS Safety Report 7169917-1 (Version None)
Quarter: 2010Q4

REPORT INFORMATION
  Report Type: 
  Country: None (occurrence: None)
  Receive Date: 20101217
  Receipt Date: 20101213
  Transmission Date: 20110411
  Serious: Yes (Hospitalization)
  Sender: FDA-Public Use
  Company Number: US-SHIRE-SPV1-2010-02097

PATIENT
  Sex: Male
  Weight: 9.8 kg

DRUGS (5)
  1. IDURSULFASE [Suspect]
     Indication: MUCOPOLYSACCHARIDOSIS II
     Dosage: 6.02 MG, 1X/WEEK
     Route: 041
     Dates: start: 20100604
  2. ACETAMINOPHEN [Concomitant]
     Indication: PREMEDICATION
     Dosage: UNK UNK, UNKNOWN
     Route: 065
     Dates: start: 20100604
  3. DIPHENHYDRAMINE [Concomitant]
     Indication: PREMEDICATION
     Dosage: UNK, UNKNOWN
     Dates: start: 20100604
  4. HYDROCORTISONE [Concomitant]
     Indication: PREMEDICATION
     Dosage: UNK, UNKNOWN
     Route: 065
     Dates: start: 20100604
  5. EMLA [Concomitant]
     Indication: LOCAL ANAESTHESIA
     Dosage: UNK, UNKNOWN
     Route: 061
     Dates: start: 20100604

REACTIONS (2)
  - OTITIS MEDIA [None]
  - RESPIRATORY SYNCYTIAL VIRUS BRONCHIOLITIS [None]
